FAERS Safety Report 15223133 (Version 1)
Quarter: 2018Q3

REPORT INFORMATION
  Report Type: Spontaneous
  Country: DE (occurrence: DE)
  Receive Date: 20180731
  Receipt Date: 20180731
  Transmission Date: 20181010
  Serious: Yes (Other)
  Sender: FDA-Public Use
  Company Number: PHHY2012DE143995

PATIENT
  Age: 68 Year
  Sex: Female

DRUGS (9)
  1. SEVREDOL [Concomitant]
     Active Substance: MORPHINE
     Indication: PRODUCT USE IN UNAPPROVED INDICATION
     Dosage: 150 MG, UNK
     Route: 065
  2. PACLITAXEL. [Suspect]
     Active Substance: PACLITAXEL
     Indication: PRODUCT USE IN UNAPPROVED INDICATION
     Dosage: 90 MG/M2, UNK
     Route: 042
     Dates: start: 20120801, end: 20120808
  3. PACLITAXEL. [Suspect]
     Active Substance: PACLITAXEL
     Dosage: 90 MG/M2, UNK
     Route: 042
     Dates: start: 20121011
  4. LYRICA [Concomitant]
     Active Substance: PREGABALIN
     Indication: PRODUCT USE IN UNAPPROVED INDICATION
     Dosage: 300 MG, QD
     Route: 048
     Dates: start: 20120816
  5. BEVACIZUMAB. [Suspect]
     Active Substance: BEVACIZUMAB
     Indication: BREAST CANCER
     Dosage: 1 DF, Q2W
     Route: 042
     Dates: start: 20120801, end: 20120801
  6. BEVACIZUMAB. [Suspect]
     Active Substance: BEVACIZUMAB
     Dosage: 720 MG, Q2W
     Route: 042
     Dates: start: 20121011
  7. LEVOFLOXACIN. [Concomitant]
     Active Substance: LEVOFLOXACIN
     Indication: PRODUCT USE IN UNAPPROVED INDICATION
     Dosage: 500 MG, UNK
     Route: 048
  8. IBUPROFEN. [Concomitant]
     Active Substance: IBUPROFEN
     Indication: PRODUCT USE IN UNAPPROVED INDICATION
     Dosage: 2400 MG, QD
     Route: 048
     Dates: start: 20120816
  9. TARGIN [Concomitant]
     Active Substance: NALOXONE HYDROCHLORIDE\OXYCODONE HYDROCHLORIDE
     Indication: PRODUCT USE IN UNAPPROVED INDICATION
     Dosage: 60 MG, QD
     Route: 048
     Dates: start: 20120816

REACTIONS (4)
  - Anaemia [Recovered/Resolved]
  - Cytopenia [Recovered/Resolved]
  - Granulocytopenia [Unknown]
  - Anaemia [Recovered/Resolved]

NARRATIVE: CASE EVENT DATE: 20120816
